FAERS Safety Report 4908006-0 (Version None)
Quarter: 2006Q1

REPORT INFORMATION
  Report Type: 
  Country: None (occurrence: None)
  Receive Date: 20060210
  Receipt Date: 20060208
  Transmission Date: 20060701
  Serious: Yes (Hospitalization)
  Sender: FDA-Public Use
  Company Number: US-GLAXOSMITHKLINE-A0592868A

PATIENT
  Sex: Female

DRUGS (3)
  1. PAXIL [Suspect]
     Indication: DEPRESSION
     Dosage: 10MG PER DAY
     Route: 048
  2. PAROXETINE HCL [Suspect]
     Indication: DEPRESSION
     Dosage: 10MG UNKNOWN
  3. VITAMINS [Concomitant]

REACTIONS (12)
  - BLOOD POTASSIUM DECREASED [None]
  - BLOOD SODIUM DECREASED [None]
  - CHILLS [None]
  - CONFUSIONAL STATE [None]
  - DEHYDRATION [None]
  - DISORIENTATION [None]
  - DIZZINESS [None]
  - DRUG WITHDRAWAL SYNDROME [None]
  - PANIC ATTACK [None]
  - PHOTOSENSITIVITY REACTION [None]
  - POLYURIA [None]
  - VISION BLURRED [None]
